FAERS Safety Report 16025951 (Version 1)
Quarter: 2019Q1

REPORT INFORMATION
  Report Type: Spontaneous
  Country: ES (occurrence: ES)
  Receive Date: 20190302
  Receipt Date: 20190302
  Transmission Date: 20190418
  Serious: Yes (Other)
  Sender: FDA-Public Use
  Company Number: ES-AUROBINDO-AUR-APL-2019-006871

PATIENT

DRUGS (7)
  1. INSULIN GLARGINE [Suspect]
     Active Substance: INSULIN GLARGINE
     Indication: TYPE 2 DIABETES MELLITUS
     Dosage: 66 INTERNATIONAL UNIT,66 IU
     Route: 058
  2. METFORMIN [Suspect]
     Active Substance: METFORMIN HYDROCHLORIDE
     Indication: TYPE 2 DIABETES MELLITUS
     Dosage: UNK
     Route: 048
  3. HUMALOG [Concomitant]
     Active Substance: INSULIN LISPRO
     Indication: TYPE 2 DIABETES MELLITUS
     Dosage: 6 DOSAGE FORM, 3 TIMES A DAY TID (6-6-6) ACCORDING TO GLUCEMIAS
     Route: 058
  4. TRULICITY [Concomitant]
     Active Substance: DULAGLUTIDE
     Indication: TYPE 2 DIABETES MELLITUS
     Dosage: UNK, EVERY WEEK (QW)
     Route: 058
  5. INSULIN GLARGINE [Suspect]
     Active Substance: INSULIN GLARGINE
     Dosage: 68 INTERNATIONAL UNIT, ONCE A DAY
     Route: 058
  6. CORTISONE ACETATE. [Suspect]
     Active Substance: CORTISONE ACETATE
     Indication: JOINT INJURY
     Dosage: UNK
     Route: 065
  7. INSULIN ASPART [Concomitant]
     Active Substance: INSULIN ASPART
     Indication: TYPE 2 DIABETES MELLITUS
     Dosage: 54 DOSAGE FORM, 3 TIMES A DAY TID (54-54-54)
     Route: 058

REACTIONS (2)
  - Hyperglycaemia [Recovering/Resolving]
  - Diarrhoea [Recovered/Resolved]
